FAERS Safety Report 8120697-2 (Version None)
Quarter: 2012Q1

REPORT INFORMATION
  Report Type: 
  Country: None (occurrence: None)
  Receive Date: 20120207
  Receipt Date: 20120131
  Transmission Date: 20120608
  Serious: Yes (Other)
  Sender: FDA-Public Use
  Company Number: DE-ASTRAZENECA-2012SE05815

PATIENT
  Sex: Male

DRUGS (12)
  1. NEPHROTRANS [Concomitant]
     Dosage: TWO TIMES A DAY
     Route: 048
  2. PANTOPRAZOL HEXAL [Concomitant]
     Dosage: DAILY
     Route: 048
  3. SIMVASTATIN RATIO [Concomitant]
     Dosage: DAILY
     Route: 048
  4. TORASEMID 1A PHARMA [Concomitant]
     Dosage: DAILY
     Route: 048
  5. ASPIRIN [Concomitant]
     Dosage: DAILY
     Route: 048
  6. VALSARTAN ABZ [Concomitant]
     Dosage: DAILY
     Route: 048
  7. LANTUS 100 [Concomitant]
     Dosage: DAILY
     Route: 058
  8. CARVEDIOL 1A PHARMA [Concomitant]
     Dosage: TWO TIMES A DAY
     Route: 048
  9. BRILIQUE [Suspect]
     Route: 048
     Dates: start: 20111120, end: 20111207
  10. AMLODIGAMMA TOP [Concomitant]
     Dosage: DAILY
     Route: 048
  11. TRAMAGIT [Concomitant]
     Dosage: TWO TIMES A DAY
     Route: 048
  12. SPIRONOLACTONE [Concomitant]
     Dosage: TWO TIMES A DAY
     Route: 048

REACTIONS (3)
  - DYSPNOEA [None]
  - OEDEMA [None]
  - BLOOD GLUCOSE INCREASED [None]
